FAERS Safety Report 24985900 (Version 1)
Quarter: 2025Q1

REPORT INFORMATION
  Report Type: Spontaneous
  Country: FR (occurrence: FR)
  Receive Date: 20250219
  Receipt Date: 20250219
  Transmission Date: 20250408
  Serious: Yes (Other)
  Sender: BAYER HEALTHCARE PHARMACEUTICALS INC.
  Company Number: FR-BAYER-2025A022734

PATIENT
  Age: 56 Year
  Sex: Female
  Weight: 48 kg

DRUGS (32)
  1. CYPROTERONE ACETATE [Suspect]
     Active Substance: CYPROTERONE ACETATE
     Indication: Hypertrichosis
     Route: 048
     Dates: start: 1987, end: 20190208
  2. CYPROTERONE ACETATE [Suspect]
     Active Substance: CYPROTERONE ACETATE
     Indication: Hypertrichosis
     Route: 048
     Dates: start: 20111211, end: 20190208
  3. CYPROTERONE ACETATE [Suspect]
     Active Substance: CYPROTERONE ACETATE
     Indication: Hypertrichosis
     Route: 048
     Dates: start: 20140529, end: 20190208
  4. CYPROTERONE ACETATE [Suspect]
     Active Substance: CYPROTERONE ACETATE
     Indication: Hypertrichosis
     Route: 048
     Dates: start: 20150614, end: 20190208
  5. CYPROTERONE ACETATE [Suspect]
     Active Substance: CYPROTERONE ACETATE
     Indication: Hypertrichosis
     Route: 048
     Dates: start: 20171127, end: 20190208
  6. CYPROTERONE ACETATE [Suspect]
     Active Substance: CYPROTERONE ACETATE
     Indication: Hypertrichosis
     Route: 048
     Dates: start: 20131119, end: 20190208
  7. CYPROTERONE ACETATE [Suspect]
     Active Substance: CYPROTERONE ACETATE
     Dates: start: 2012, end: 2019
  8. CIPROFLOXACIN [Suspect]
     Active Substance: CIPROFLOXACIN
     Dates: start: 20120912
  9. VENLAFAXINE [Concomitant]
     Active Substance: VENLAFAXINE HYDROCHLORIDE
     Indication: Depression
     Dates: start: 20131119
  10. ESTRADIOL [Concomitant]
     Active Substance: ESTRADIOL
     Dates: start: 20190208
  11. ENALAPRIL [Concomitant]
     Active Substance: ENALAPRIL
     Dates: start: 20131119
  12. GYDRELLE [Concomitant]
     Dates: start: 20190208
  13. CHOLECALCIFEROL [Concomitant]
     Active Substance: CHOLECALCIFEROL
     Dates: start: 20190208
  14. DIETARY SUPPLEMENT [Concomitant]
     Active Substance: DIETARY SUPPLEMENT
     Dates: start: 2019
  15. RENUTRYL [Concomitant]
     Dates: start: 2019
  16. ESTRIOL [Concomitant]
     Active Substance: ESTRIOL
     Dates: start: 20100903
  17. ESTRIOL [Concomitant]
     Active Substance: ESTRIOL
     Dates: start: 20120912
  18. ESTRIOL [Concomitant]
     Active Substance: ESTRIOL
     Dates: start: 20130516
  19. ESTRIOL [Concomitant]
     Active Substance: ESTRIOL
     Dates: start: 20130924
  20. ESTRIOL [Concomitant]
     Active Substance: ESTRIOL
     Dates: start: 20130624
  21. ESTRIOL [Concomitant]
     Active Substance: ESTRIOL
     Dates: start: 20140708
  22. ESTRIOL [Concomitant]
     Active Substance: ESTRIOL
     Dates: start: 20150615
  23. ESTRIOL [Concomitant]
     Active Substance: ESTRIOL
     Dates: start: 20160109
  24. ESTRIOL [Concomitant]
     Active Substance: ESTRIOL
     Dates: start: 20160317
  25. MYCOSKIN [Concomitant]
     Dates: start: 20151007
  26. NORFLOXACIN [Concomitant]
     Active Substance: NORFLOXACIN
     Dates: start: 20130315
  27. NORFLOXACIN [Concomitant]
     Active Substance: NORFLOXACIN
     Dates: start: 20141024
  28. OFLOXACIN [Concomitant]
     Active Substance: OFLOXACIN
     Dates: start: 20130810
  29. OFLOXACIN [Concomitant]
     Active Substance: OFLOXACIN
  30. DULOXETINE [Concomitant]
     Active Substance: DULOXETINE
     Dates: start: 2010
  31. DULOXETINE [Concomitant]
     Active Substance: DULOXETINE
     Dates: start: 2011
  32. SPIRAMYCINE METRONIDAZOLE ZENTIVA [Concomitant]
     Dates: start: 20110617

REACTIONS (1)
  - Meningioma [None]

NARRATIVE: CASE EVENT DATE: 20190212
